FAERS Safety Report 9687423 (Version 1)
Quarter: 2013Q4

REPORT INFORMATION
  Report Type: Spontaneous
  Country: US (occurrence: US)
  Receive Date: 20131114
  Receipt Date: 20131114
  Transmission Date: 20140711
  Serious: No
  Sender: FDA-Public Use
  Company Number: US-009507513-1311USA003674

PATIENT
  Sex: Female

DRUGS (5)
  1. SAPHRIS [Suspect]
     Dosage: 15MG PER DAY
     Route: 060
     Dates: start: 20131003
  2. MIRAPEX [Concomitant]
  3. SEROQUEL [Concomitant]
  4. LEXAPRO [Concomitant]
  5. XANAX [Concomitant]

REACTIONS (1)
  - Restless legs syndrome [Not Recovered/Not Resolved]
